FAERS Safety Report 6210789-7 (Version None)
Quarter: 2009Q2

REPORT INFORMATION
  Report Type: 
  Country: None (occurrence: None)
  Receive Date: 20090601
  Receipt Date: 20090520
  Transmission Date: 20091009
  Serious: Yes (Hospitalization)
  Sender: FDA-Public Use
  Company Number: US-AVENTIS-200914358US

PATIENT
  Age: 55 Year
  Sex: Female

DRUGS (4)
  1. LANTUS [Suspect]
     Dosage: DOSE: UNK
     Route: 058
  2. OPTICLIK (INSULIN INJECTION PEN) [Suspect]
  3. CORTICOSTEROIDS [Suspect]
     Dosage: DOSE: UNK
  4. HUMULINE                           /00806401/ [Concomitant]
     Dosage: DOSE: UNK

REACTIONS (10)
  - BLOOD GLUCOSE INCREASED [None]
  - CHRONIC OBSTRUCTIVE PULMONARY DISEASE [None]
  - DIVERTICULITIS [None]
  - GASTRIC DISORDER [None]
  - GASTRIC ULCER [None]
  - GASTRITIS [None]
  - GLYCOSYLATED HAEMOGLOBIN INCREASED [None]
  - HEADACHE [None]
  - MYOCARDIAL INFARCTION [None]
  - WEIGHT DECREASED [None]
